FAERS Safety Report 20533881 (Version 2)
Quarter: 2022Q1

REPORT INFORMATION
  Report Type: Report from Study
  Country: US (occurrence: US)
  Receive Date: 20220301
  Receipt Date: 20220307
  Transmission Date: 20220423
  Serious: Yes (Other)
  Sender: FDA-Public Use
  Company Number: US-BEH-2022142535

PATIENT
  Age: 39 Year
  Sex: Male

DRUGS (1)
  1. HIZENTRA [Suspect]
     Active Substance: HUMAN IMMUNOGLOBULIN G
     Indication: Primary immunodeficiency syndrome
     Dosage: 14 GRAM, QW
     Route: 058
     Dates: start: 20190419

REACTIONS (14)
  - Lymphadenopathy [Unknown]
  - Biopsy lymph gland abnormal [Unknown]
  - Splenomegaly [Unknown]
  - Pulmonary mass [Unknown]
  - Groin pain [Unknown]
  - Weight decreased [Unknown]
  - Lymphadenitis [Unknown]
  - Infusion site rash [Not Recovered/Not Resolved]
  - Rash erythematous [Not Recovered/Not Resolved]
  - Fatigue [Unknown]
  - Influenza like illness [Unknown]
  - No adverse event [Unknown]
  - Product supply issue [Unknown]
  - Treatment delayed [Unknown]

NARRATIVE: CASE EVENT DATE: 20190101
